FAERS Safety Report 11006173 (Version 3)
Quarter: 2016Q3

REPORT INFORMATION
  Report Type: Report from Study
  Country: US (occurrence: US)
  Receive Date: 20150409
  Receipt Date: 20160927
  Transmission Date: 20161109
  Serious: No
  Sender: FDA-Public Use
  Company Number: US-ASTRAZENECA-2013SE64092

PATIENT
  Age: 61 Year
  Sex: Male
  Weight: 111.6 kg

DRUGS (25)
  1. VITAMIN B COMPLEX [Concomitant]
     Active Substance: CYANOCOBALAMIN\DEXPANTHENOL\NIACINAMIDE\PYRIDOXINE HYDROCHLORIDE\RIBOFLAVIN 5^-PHOSPHATE SODIUM\THIAMINE HYDROCHLORIDE\VITAMIN B COMPLEX
     Indication: VITAMIN SUPPLEMENTATION
     Dosage: 1DF= 1 TAB
     Route: 048
     Dates: start: 20110829
  2. METOPROLOL. [Concomitant]
     Active Substance: METOPROLOL
     Indication: HYPERTENSION
     Route: 048
     Dates: start: 20130616
  3. TRAZODONE [Concomitant]
     Active Substance: TRAZODONE HYDROCHLORIDE
     Indication: POOR QUALITY SLEEP
     Route: 048
     Dates: start: 20110930
  4. CLOPIDOGREL BISULFATE. [Concomitant]
     Active Substance: CLOPIDOGREL BISULFATE
     Indication: PROPHYLAXIS
     Route: 048
     Dates: start: 20120820
  5. LISINOPRIL. [Concomitant]
     Active Substance: LISINOPRIL
     Indication: RENAL DISORDER
     Route: 048
     Dates: start: 20121001
  6. FISH OIL [Concomitant]
     Active Substance: FISH OIL
     Indication: PROPHYLAXIS
     Route: 048
     Dates: start: 20110829
  7. NICOTINE. [Concomitant]
     Active Substance: NICOTINE
     Indication: EX-TOBACCO USER
     Dosage: 10 MG, PRN10.0MG AS REQUIRED
     Route: 055
     Dates: start: 20110816
  8. MAGNESIUM [Concomitant]
     Active Substance: MAGNESIUM
     Indication: VITAMIN SUPPLEMENTATION
     Dosage: 1DF=3 TABS
     Route: 048
     Dates: start: 20110829
  9. LISINOPRIL. [Concomitant]
     Active Substance: LISINOPRIL
     Indication: BLOOD PRESSURE MEASUREMENT
     Route: 048
     Dates: start: 20121001
  10. BETACAROTENE [Concomitant]
     Active Substance: .BETA.-CAROTENE
     Indication: VITAMIN SUPPLEMENTATION
     Dates: start: 20110829
  11. VITAMIN E [Concomitant]
     Active Substance: .ALPHA.-TOCOPHEROL
     Indication: VITAMIN SUPPLEMENTATION
     Dosage: 800 UNIT QD
     Route: 048
     Dates: start: 20110829
  12. CHOLECALCIFEROL [Concomitant]
     Active Substance: CHOLECALCIFEROL
     Indication: VITAMIN SUPPLEMENTATION
     Dosage: 1DF= 1TAB
     Route: 048
     Dates: start: 20110829
  13. METFORMIN [Concomitant]
     Active Substance: METFORMIN HYDROCHLORIDE
     Indication: TYPE 2 DIABETES MELLITUS
     Route: 048
     Dates: start: 20130215
  14. ALBUTEROL. [Concomitant]
     Active Substance: ALBUTEROL
     Indication: CHRONIC OBSTRUCTIVE PULMONARY DISEASE
     Dosage: 90 UG QID
     Route: 055
     Dates: start: 20121001
  15. BACLOFEN. [Concomitant]
     Active Substance: BACLOFEN
     Indication: HYPOTONIA
     Route: 048
     Dates: start: 20111011
  16. HYDROCODONE/ACETAMINOPHEN [Concomitant]
     Active Substance: ACETAMINOPHEN\HYDROCODONE
     Indication: PAIN
     Dosage: 500 MG EVERY 6 HOURS
     Route: 048
     Dates: start: 20121126
  17. NIACIN. [Concomitant]
     Active Substance: NIACIN
     Indication: VITAMIN SUPPLEMENTATION
     Route: 048
     Dates: start: 20110829
  18. ASCORBIC ACID. [Concomitant]
     Active Substance: ASCORBIC ACID
     Indication: VITAMIN SUPPLEMENTATION
     Dosage: 1DF=3 SCOOPS POWDER
     Dates: start: 20110829
  19. HYDROXYZINE PAMOATE. [Concomitant]
     Active Substance: HYDROXYZINE PAMOATE
     Indication: ANXIETY
     Route: 048
     Dates: start: 20120813
  20. ATORVASTATIN [Concomitant]
     Active Substance: ATORVASTATIN
     Indication: DYSLIPIDAEMIA
     Route: 048
     Dates: start: 20120820
  21. ASPIRIN. [Concomitant]
     Active Substance: ASPIRIN
     Indication: PROPHYLAXIS
     Dosage: 325 MG, QD
     Route: 048
     Dates: start: 20120912
  22. EXENATIDE [Suspect]
     Active Substance: EXENATIDE
     Indication: TYPE 2 DIABETES MELLITUS
     Route: 058
     Dates: start: 20130418, end: 20130805
  23. SERTRALINE HCL [Concomitant]
     Active Substance: SERTRALINE HYDROCHLORIDE
     Indication: DEPRESSION
     Route: 048
     Dates: start: 20121116
  24. TRAZODONE [Concomitant]
     Active Substance: TRAZODONE HYDROCHLORIDE
     Indication: DEPRESSION
     Route: 048
     Dates: start: 20110930
  25. CALCIUM CARBONATE. [Concomitant]
     Active Substance: CALCIUM CARBONATE
     Indication: VITAMIN SUPPLEMENTATION
     Route: 048
     Dates: start: 20110829

REACTIONS (1)
  - Pancreatitis [Recovered/Resolved]

NARRATIVE: CASE EVENT DATE: 20130722
